FAERS Safety Report 9632535 (Version 2)
Quarter: 2013Q4

REPORT INFORMATION
  Report Type: Spontaneous
  Country: JP (occurrence: JP)
  Receive Date: 20131018
  Receipt Date: 20131018
  Transmission Date: 20140711
  Serious: Yes (Hospitalization, Other)
  Sender: FDA-Public Use
  Company Number: JP-BRISTOL-MYERS SQUIBB COMPANY-19219484

PATIENT
  Age: 75 Year
  Sex: Female

DRUGS (3)
  1. ABILIFY [Suspect]
     Route: 048
  2. ZOLOFT [Concomitant]
     Dosage: TABS
  3. LEVOTOMIN [Concomitant]
     Dosage: TABS

REACTIONS (2)
  - Melaena [Unknown]
  - Hypoglycaemia [Recovering/Resolving]
